FAERS Safety Report 19099544 (Version 3)
Quarter: 2022Q4

REPORT INFORMATION
  Report Type: Spontaneous
  Country: CA (occurrence: CA)
  Receive Date: 20210407
  Receipt Date: 20221218
  Transmission Date: 20230112
  Serious: Yes (Hospitalization, Other)
  Sender: FDA-Public Use
  Company Number: CA-AUROBINDO-AUR-APL-2021-013674

PATIENT
  Age: 32 Year
  Sex: Female

DRUGS (11)
  1. OLANZAPINE [Suspect]
     Active Substance: OLANZAPINE
     Indication: Schizoaffective disorder bipolar type
     Dosage: 25 MILLIGRAM, ONCE A DAY
     Route: 065
  2. PREGABALIN [Suspect]
     Active Substance: PREGABALIN
     Indication: Generalised anxiety disorder
     Dosage: 250 MILLIGRAM, TWO TIMES A DAY
     Route: 065
  3. PREGABALIN [Suspect]
     Active Substance: PREGABALIN
     Indication: Generalised anxiety disorder
     Dosage: UNK
     Route: 065
  4. SERTRALINE [Suspect]
     Active Substance: SERTRALINE HYDROCHLORIDE
     Indication: Schizoaffective disorder depressive type
     Dosage: UNK
     Route: 065
  5. ZUCLOPENTHIXOL DECANOATE [Suspect]
     Active Substance: ZUCLOPENTHIXOL DECANOATE
     Indication: Schizoaffective disorder bipolar type
     Dosage: 200 MILLIGRAM, ONE EVERY 14 DAYS
     Route: 030
  6. ZUCLOPENTHIXOL DECANOATE [Suspect]
     Active Substance: ZUCLOPENTHIXOL DECANOATE
     Dosage: 150 MILLIGRAM, ONE EVERY 14 DAYS
     Route: 030
  7. ARIPIPRAZOLE [Concomitant]
     Active Substance: ARIPIPRAZOLE
     Indication: Schizoaffective disorder bipolar type
     Dosage: 400 MILLIGRAM, ONE EVERY 28 DAYS
     Route: 030
  8. FLUPENTIXOL DECANOATE [Concomitant]
     Active Substance: FLUPENTIXOL DECANOATE
     Indication: Schizoaffective disorder bipolar type
     Dosage: UNK
     Route: 065
  9. LITHIUM [Concomitant]
     Active Substance: LITHIUM
     Indication: Sleep disorder
     Dosage: 900 MILLIGRAM, ONCE A DAY
     Route: 065
  10. PALIPERIDONE [Concomitant]
     Active Substance: PALIPERIDONE
     Indication: Schizoaffective disorder bipolar type
     Dosage: 150 MILLIGRAM, 1 EVERY 21 DAYS
     Route: 030
  11. QUETIAPINE [Concomitant]
     Active Substance: QUETIAPINE
     Indication: Sleep disorder
     Dosage: 25 MILLIGRAM, ONCE A DAY
     Route: 065

REACTIONS (6)
  - Schizoaffective disorder bipolar type [Unknown]
  - Metabolic syndrome [Unknown]
  - Extrapyramidal disorder [Unknown]
  - Mania [Unknown]
  - Off label use [Unknown]
  - Overdose [Unknown]
